FAERS Safety Report 5041611-2 (Version None)
Quarter: 2006Q2

REPORT INFORMATION
  Report Type: 
  Country: None (occurrence: None)
  Receive Date: 20060628
  Receipt Date: 20060616
  Transmission Date: 20061013
  Serious: Yes (Other)
  Sender: FDA-Public Use
  Company Number: SEWYE532104APR06

PATIENT
  Sex: Female

DRUGS (3)
  1. EFFEXOR [Suspect]
     Dosage: 85-90 TABLETS; 75 MG 2X PER 1 DAY ORAL; ORAL
     Route: 048
     Dates: start: 20060107, end: 20060107
  2. EFFEXOR [Suspect]
     Dosage: 85-90 TABLETS; 75 MG 2X PER 1 DAY ORAL; ORAL
     Route: 048
     Dates: start: 20040930, end: 20060107
  3. EFFEXOR [Suspect]
     Dosage: 85-90 TABLETS; 75 MG 2X PER 1 DAY ORAL; ORAL
     Route: 048
     Dates: start: 20060110

REACTIONS (10)
  - CONVULSION [None]
  - DIZZINESS [None]
  - DYSURIA [None]
  - HEADACHE [None]
  - HYPERHIDROSIS [None]
  - INTENTIONAL OVERDOSE [None]
  - LIBIDO DECREASED [None]
  - NAUSEA [None]
  - OXYGEN SATURATION DECREASED [None]
  - VISION BLURRED [None]
